FAERS Safety Report 22272782 (Version 2)
Quarter: 2024Q2

REPORT INFORMATION
  Report Type: Report from Study
  Country: CN (occurrence: CN)
  Receive Date: 20230502
  Receipt Date: 20240418
  Transmission Date: 20240716
  Serious: Yes (Other)
  Sender: FDA-Public Use
  Company Number: CN-SUN PHARMACEUTICAL INDUSTRIES LTD-2023R1-385839

PATIENT
  Age: 7 Year
  Sex: Male

DRUGS (4)
  1. DOXORUBICIN [Suspect]
     Active Substance: DOXORUBICIN
     Indication: Epstein-Barr viraemia
     Dosage: 25 MILLIGRAM/SQ. METER
     Route: 065
  2. METHYLPREDNISOLONE [Suspect]
     Active Substance: METHYLPREDNISOLONE
     Indication: Epstein-Barr viraemia
     Dosage: 2 MG/KG/DAY ADMINISTERED ON DAYS 1-5
     Route: 065
  3. PEGASPARGASE [Suspect]
     Active Substance: PEGASPARGASE
     Indication: Epstein-Barr viraemia
     Dosage: UNK
     Route: 065
  4. ETOPOSIDE [Suspect]
     Active Substance: ETOPOSIDE
     Indication: Epstein-Barr viraemia
     Dosage: 100 MILLIGRAM/SQ. METER
     Route: 065

REACTIONS (1)
  - Drug ineffective [Unknown]
